FAERS Safety Report 7490363-5 (Version None)
Quarter: 2011Q2

REPORT INFORMATION
  Report Type: 
  Country: None (occurrence: None)
  Receive Date: 20110517
  Receipt Date: 20110517
  Transmission Date: 20111010
  Serious: Yes (Death)
  Sender: FDA-Public Use
  Company Number: None

PATIENT
  Age: 58 Year
  Sex: Male

DRUGS (9)
  1. PROAIR HFA [Concomitant]
  2. DEXAMETHASONE [Concomitant]
  3. CLINDAMYCIN [Concomitant]
  4. REVLIMID [Suspect]
     Indication: MULTIPLE MYELOMA
     Dosage: REVLIMID 15MG DAILY ORAL
     Route: 048
     Dates: start: 20091119, end: 20100501
  5. MORPHINE [Concomitant]
  6. SENNA-MINT WAF [Concomitant]
  7. OXYCODONE HCL [Concomitant]
  8. ATROVENT [Concomitant]
  9. CIALIS [Concomitant]

REACTIONS (2)
  - DISEASE PROGRESSION [None]
  - MULTIPLE MYELOMA [None]
